FAERS Safety Report 4964293-4 (Version None)
Quarter: 2006Q1

REPORT INFORMATION
  Report Type: 
  Country: None (occurrence: None)
  Receive Date: 20060331
  Receipt Date: 20060321
  Transmission Date: 20060701
  Serious: Yes (Other)
  Sender: FDA-Public Use
  Company Number: 2006022507

PATIENT
  Age: 18 Year
  Sex: Male
  Weight: 74.8435 kg

DRUGS (1)
  1. NEOSPORIN [Suspect]
     Indication: BLISTER
     Dosage: UNSPECIFIED AMOUNT, TOPICAL
     Route: 061
     Dates: start: 20010525, end: 20010601

REACTIONS (7)
  - CONDITION AGGRAVATED [None]
  - DERMATITIS CONTACT [None]
  - DRUG INEFFECTIVE [None]
  - IDIOSYNCRATIC DRUG REACTION [None]
  - PSORIASIS [None]
  - SCAR [None]
  - SKIN EXFOLIATION [None]
